FAERS Safety Report 16793750 (Version 1)
Quarter: 2019Q3

REPORT INFORMATION
  Report Type: Spontaneous
  Country: DE (occurrence: DE)
  Receive Date: 20190911
  Receipt Date: 20190911
  Transmission Date: 20191005
  Serious: Yes (Other)
  Sender: FDA-Public Use
  Company Number: DE-TEVA-2019-DE-1103712

PATIENT
  Age: 46 Year
  Sex: Female
  Weight: 74 kg

DRUGS (2)
  1. VALSARTAN. [Suspect]
     Active Substance: VALSARTAN
     Indication: HYPERTENSION
     Dosage: 80 MG/D / 259 DAY
     Route: 048
     Dates: start: 20180209, end: 20181026
  2. METHYLDOPA. [Concomitant]
     Active Substance: METHYLDOPA
     Indication: HYPERTENSION
     Dosage: 1000 [MG/DAY] 4 SEPARATED DOSES, 2 DAYS
     Route: 048
     Dates: start: 20181027, end: 20181029

REACTIONS (2)
  - Exposure during pregnancy [Unknown]
  - Oligohydramnios [Not Recovered/Not Resolved]
